FAERS Safety Report 9397619 (Version 1)
Quarter: 2013Q3

REPORT INFORMATION
  Report Type: Spontaneous
  Country: JP (occurrence: JP)
  Receive Date: 20130712
  Receipt Date: 20130712
  Transmission Date: 20140515
  Serious: Yes (Other)
  Sender: FDA-Public Use
  Company Number: JP-ELI_LILLY_AND_COMPANY-JP201305009194

PATIENT
  Age: 33 Year
  Sex: Female

DRUGS (5)
  1. ZYPREXA [Suspect]
     Indication: BIPOLAR I DISORDER
     Dosage: 5 MG, QD
     Route: 048
     Dates: start: 20130221, end: 20130416
  2. LANDSEN [Concomitant]
     Indication: BIPOLAR I DISORDER
     Dosage: UNK
     Route: 048
     Dates: start: 20110629
  3. EURODIN                            /00425901/ [Concomitant]
     Indication: SLEEP DISORDER
     Dosage: UNK
     Route: 048
     Dates: start: 20110629
  4. AMOBAN [Concomitant]
     Indication: SLEEP DISORDER
     Dosage: UNK
     Route: 048
     Dates: start: 20110629
  5. GRANDAXIN [Concomitant]
     Indication: AUTONOMIC NERVOUS SYSTEM IMBALANCE
     Dosage: UNK
     Route: 048
     Dates: start: 20110629

REACTIONS (2)
  - Abortion spontaneous [Recovered/Resolved]
  - Maternal exposure during pregnancy [Recovered/Resolved]
